FAERS Safety Report 8545021-2 (Version None)
Quarter: 2012Q3

REPORT INFORMATION
  Report Type: 
  Country: None (occurrence: None)
  Receive Date: 20120727
  Receipt Date: 20120719
  Transmission Date: 20120928
  Serious: Yes (Hospitalization)
  Sender: FDA-Public Use
  Company Number: CA-ROCHE-1091564

PATIENT
  Sex: Female

DRUGS (5)
  1. XOLAIR [Suspect]
     Indication: ASTHMA
     Route: 058
     Dates: start: 20120716
  2. CYCLOSPORINE [Concomitant]
     Route: 065
  3. SYMBICORT [Concomitant]
     Route: 065
  4. VENTOLIN [Concomitant]
     Route: 065
  5. SINGULAIR [Concomitant]
     Route: 065

REACTIONS (3)
  - SINUSITIS [None]
  - ASTHMA [None]
  - PYREXIA [None]
